FAERS Safety Report 5074450-7 (Version None)
Quarter: 2006Q3

REPORT INFORMATION
  Report Type: 
  Country: None (occurrence: None)
  Receive Date: 20060714
  Receipt Date: 20060322
  Transmission Date: 20061208
  Serious: No
  Sender: FDA-Public Use
  Company Number: 2006SP001364

PATIENT
  Age: 30 Year
  Sex: Female

DRUGS (8)
  1. LUNESTA [Suspect]
     Indication: DRUG USE FOR UNKNOWN INDICATION
     Dosage: 2 MG;HS;ORAL
     Route: 048
     Dates: start: 20060321, end: 20060322
  2. LUNESTA [Suspect]
     Indication: DRUG USE FOR UNKNOWN INDICATION
     Dosage: 2 MG;HS;ORAL
     Route: 048
     Dates: start: 20060326
  3. SUMATRIPTAN SUCCINATE [Concomitant]
  4. VERAPAMIL [Concomitant]
  5. WELLBUTRIN [Concomitant]
  6. VITAMINS [Concomitant]
  7. CALCIUM GLUCONATE [Concomitant]
  8. ORAL CONTRACEPTIVE NOS [Concomitant]

REACTIONS (1)
  - DYSGEUSIA [None]
